FAERS Safety Report 9298815 (Version 1)
Quarter: 2013Q2

REPORT INFORMATION
  Report Type: Spontaneous
  Country: ZA (occurrence: None)
  Receive Date: 20130515
  Receipt Date: 20130515
  Transmission Date: 20140414
  Serious: Yes (Other)
  Sender: FDA-Public Use
  Company Number: 2013CP000016

PATIENT
  Age: 7 Week
  Sex: Male
  Weight: 2.6 kg

DRUGS (1)
  1. PERFALGAN [Suspect]
     Indication: POSTOPERATIVE ANALGESIA
     Route: 042

REACTIONS (4)
  - Accidental overdose [None]
  - International normalised ratio increased [None]
  - Activated partial thromboplastin time prolonged [None]
  - Toxicity to various agents [None]
